FAERS Safety Report 6520098-4 (Version None)
Quarter: 2009Q4

REPORT INFORMATION
  Report Type: 
  Country: None (occurrence: None)
  Receive Date: 20091229
  Receipt Date: 20091223
  Transmission Date: 20100525
  Serious: Yes (Death)
  Sender: FDA-Public Use
  Company Number: PHEH2009US15660

PATIENT
  Sex: Male

DRUGS (6)
  1. GLEEVEC [Suspect]
     Indication: MALIGNANT MELANOMA
     Dosage: 400 MG, QD
     Route: 048
     Dates: start: 20081210, end: 20090121
  2. LOPRESSOR [Concomitant]
     Indication: ATRIAL FIBRILLATION
     Dosage: 75 MG
     Route: 048
  3. LOPRESSOR [Concomitant]
     Indication: HYPERTENSION
  4. SYNTHROID [Concomitant]
     Indication: HYPOTHYROIDISM
  5. PRILOSEC [Concomitant]
     Indication: REFLUX OESOPHAGITIS
     Dosage: 20 MG
     Route: 048
  6. MEGACE [Concomitant]
     Indication: APPETITE DISORDER
     Dosage: 600 MG
     Route: 048

REACTIONS (1)
  - MALIGNANT NEOPLASM PROGRESSION [None]
